FAERS Safety Report 6211795-9 (Version None)
Quarter: 2009Q2

REPORT INFORMATION
  Report Type: 
  Country: None (occurrence: None)
  Receive Date: 20090602
  Receipt Date: 20090521
  Transmission Date: 20091009
  Serious: Yes (Hospitalization)
  Sender: FDA-Public Use
  Company Number: US-ROCHE-634688

PATIENT
  Age: 46 Year
  Sex: Male

DRUGS (1)
  1. FUZEON [Suspect]
     Indication: DRUG USE FOR UNKNOWN INDICATION
     Route: 042
     Dates: start: 20090520

REACTIONS (3)
  - BODY TEMPERATURE INCREASED [None]
  - INCORRECT ROUTE OF DRUG ADMINISTRATION [None]
  - KNEE OPERATION [None]
